FAERS Safety Report 23980060 (Version 1)
Quarter: 2024Q2

REPORT INFORMATION
  Report Type: Other
  Country: FR (occurrence: FR)
  Receive Date: 20240617
  Receipt Date: 20240617
  Transmission Date: 20240716
  Serious: Yes (Hospitalization)
  Sender: FDA-Public Use
  Company Number: None

PATIENT

DRUGS (2)
  1. VALACYCLOVIR HYDROCHLORIDE [Suspect]
     Active Substance: VALACYCLOVIR HYDROCHLORIDE
     Indication: Oral herpes
     Dosage: 500 MILLIGRAM, BID
     Route: 048
     Dates: start: 20211216, end: 20240422
  2. VALACYCLOVIR HYDROCHLORIDE [Suspect]
     Active Substance: VALACYCLOVIR HYDROCHLORIDE
     Dosage: 1 GRAM, TID
     Route: 048
     Dates: start: 20240423, end: 20240502

REACTIONS (2)
  - Cholestasis [Recovered/Resolved with Sequelae]
  - Hepatic cytolysis [Recovered/Resolved with Sequelae]

NARRATIVE: CASE EVENT DATE: 20240501
